FAERS Safety Report 13228819 (Version 1)
Quarter: 2017Q1

REPORT INFORMATION
  Report Type: Report from Study
  Country: DE (occurrence: DE)
  Receive Date: 20170213
  Receipt Date: 20170213
  Transmission Date: 20170428
  Serious: Yes (Hospitalization)
  Sender: FDA-Public Use
  Company Number: DE-ELI_LILLY_AND_COMPANY-DE201702000136

PATIENT
  Age: 90 Year
  Sex: Female

DRUGS (2)
  1. CALCIUM + VITAMIN D                /09279801/ [Concomitant]
     Indication: OSTEOPOROSIS
  2. FORSTEO [Suspect]
     Active Substance: TERIPARATIDE
     Indication: OSTEOPOROSIS
     Dosage: UNK, QD
     Route: 058
     Dates: start: 20150427

REACTIONS (3)
  - Fall [Recovering/Resolving]
  - Dizziness [Not Recovered/Not Resolved]
  - Upper limb fracture [Recovering/Resolving]

NARRATIVE: CASE EVENT DATE: 201701
